FAERS Safety Report 7488684-5 (Version None)
Quarter: 2011Q2

REPORT INFORMATION
  Report Type: 
  Country: None (occurrence: None)
  Receive Date: 20110518
  Receipt Date: 20110511
  Transmission Date: 20111010
  Serious: Yes (Other)
  Sender: FDA-Public Use
  Company Number: B0718846A

PATIENT
  Age: 7 Decade
  Sex: Female

DRUGS (1)
  1. PROMACTA [Suspect]
     Dosage: 25MG PER DAY
     Route: 048
     Dates: start: 20110301

REACTIONS (2)
  - PALPITATIONS [None]
  - ANGINA PECTORIS [None]
